FAERS Safety Report 23138692 (Version 2)
Quarter: 2023Q4

REPORT INFORMATION
  Report Type: Spontaneous
  Country: US (occurrence: US)
  Receive Date: 20231102
  Receipt Date: 20231120
  Transmission Date: 20240109
  Serious: Yes (Hospitalization, Other)
  Sender: FDA-Public Use
  Company Number: US-AMGEN-USASP2023192365

PATIENT

DRUGS (2)
  1. FILGRASTIM [Suspect]
     Active Substance: FILGRASTIM
     Indication: Autologous haematopoietic stem cell transplant
     Dosage: ON DAY 3
     Route: 065
  2. MELPHALAN [Concomitant]
     Active Substance: MELPHALAN
     Indication: Autologous haematopoietic stem cell transplant
     Dosage: 140 OR 200 MILLIGRAM/SQ. METER, SINGLE DOSE

REACTIONS (5)
  - Unevaluable event [Unknown]
  - Febrile neutropenia [Unknown]
  - Infection [Unknown]
  - Culture urine positive [Unknown]
  - Blood culture positive [Unknown]
